FAERS Safety Report 7153600-2 (Version None)
Quarter: 2010Q4

REPORT INFORMATION
  Report Type: 
  Country: None (occurrence: None)
  Receive Date: 20101213
  Receipt Date: 20101206
  Transmission Date: 20110411
  Serious: Yes (Hospitalization)
  Sender: FDA-Public Use
  Company Number: FR-BRISTOL-MYERS SQUIBB COMPANY-15429160

PATIENT
  Age: 38 Year
  Sex: Female

DRUGS (1)
  1. ORENCIA [Suspect]
     Indication: ANKYLOSING SPONDYLITIS
     Dosage: 1ST INF-8DEC10,2ND INF-24DEC10,3RD INF-04JAN10.ATLEAST 7 COURSES EVERY 4 WEEKS.
     Dates: start: 20091208

REACTIONS (1)
  - PSORIASIS [None]
